FAERS Safety Report 4354220-5 (Version None)
Quarter: 2004Q2

REPORT INFORMATION
  Report Type: 
  Country: None (occurrence: None)
  Receive Date: 20040506
  Receipt Date: 20040504
  Transmission Date: 20050107
  Serious: Yes (Hospitalization)
  Sender: FDA-Public Use
  Company Number: US-GLAXOSMITHKLINE-A0509433A

PATIENT
  Sex: Female

DRUGS (2)
  1. ANCEF [Suspect]
     Indication: ILL-DEFINED DISORDER
     Route: 042
     Dates: start: 20040427
  2. DOLOBID [Concomitant]

REACTIONS (1)
  - SWELLING [None]
